FAERS Safety Report 5373681-6 (Version None)
Quarter: 2007Q2

REPORT INFORMATION
  Report Type: 
  Country: None (occurrence: None)
  Receive Date: 20070628
  Receipt Date: 20070622
  Transmission Date: 20071010
  Serious: Yes (Disabling)
  Sender: FDA-Public Use
  Company Number: DE-ASTRAZENECA-2007PK01261

PATIENT
  Age: 44 Year
  Sex: Female
  Weight: 122 kg

DRUGS (8)
  1. SEROQUEL [Suspect]
     Route: 048
     Dates: start: 20070122, end: 20070122
  2. SEROQUEL [Suspect]
     Route: 048
     Dates: start: 20070123, end: 20070126
  3. SEROQUEL [Suspect]
     Route: 048
     Dates: start: 20070127, end: 20070131
  4. SEROQUEL [Suspect]
     Route: 048
     Dates: start: 20070201, end: 20070202
  5. SEROQUEL [Suspect]
     Route: 048
     Dates: start: 20070203, end: 20070208
  6. SEROQUEL [Suspect]
     Route: 048
     Dates: start: 20070209, end: 20070211
  7. SEROQUEL [Suspect]
     Route: 048
     Dates: start: 20070212, end: 20070213
  8. ENALAPRIL MALEATE [Concomitant]
     Route: 048
     Dates: start: 20050501

REACTIONS (2)
  - METABOLIC SYNDROME [None]
  - WEIGHT INCREASED [None]
